FAERS Safety Report 16719439 (Version 4)
Quarter: 2020Q3

REPORT INFORMATION
  Report Type: Spontaneous
  Country: US (occurrence: US)
  Receive Date: 20190820
  Receipt Date: 20200819
  Transmission Date: 20201102
  Serious: Yes (Other)
  Sender: FDA-Public Use
  Company Number: US-009507513-1908USA005861

PATIENT
  Sex: Female

DRUGS (22)
  1. PROGRAF [Interacting]
     Active Substance: TACROLIMUS
     Indication: PRODUCT USED FOR UNKNOWN INDICATION
     Dosage: 0.5 MILLIGRAM MORNING AND 0.5 MILLIGRAM EVEING
     Route: 065
     Dates: start: 20181218
  2. MAG OX [Concomitant]
     Active Substance: MAGNESIUM OXIDE
     Dosage: 400 MILLIGRAM
  3. PREDNISONE. [Concomitant]
     Active Substance: PREDNISONE
     Dosage: UNK
     Dates: start: 20181213, end: 20181221
  4. MYCOSTATIN [Concomitant]
     Active Substance: NYSTATIN
     Dosage: UNK
  5. CALCIUM CARBONATE (+) CHOLECALCIFEROL [Concomitant]
     Active Substance: CALCIUM CARBONATE\CHOLECALCIFEROL
     Dosage: UNK
  6. PRANDIN (DEFLAZACORT) [Concomitant]
     Active Substance: DEFLAZACORT
     Dosage: UNK
     Dates: end: 201610
  7. MINERALS (UNSPECIFIED) [Concomitant]
     Dosage: UNK
  8. NOXAFIL [Suspect]
     Active Substance: POSACONAZOLE
     Dosage: AT THE TIME OF THIS REPORT, IT WAS STOPPED FOR 3 DAYS DUE TO UNKNOWN REASON AND RESTARTED
     Route: 048
  9. IMURAN [Concomitant]
     Active Substance: AZATHIOPRINE
     Dosage: UNK
  10. VALTREX [Concomitant]
     Active Substance: VALACYCLOVIR HYDROCHLORIDE
     Dosage: 500 MILLIGRAM
  11. ASPIRIN. [Concomitant]
     Active Substance: ASPIRIN
     Dosage: 325 MILLIGRAM
  12. NOXAFIL [Suspect]
     Active Substance: POSACONAZOLE
     Indication: ANTIFUNGAL TREATMENT
     Dosage: 5 ML/200 MG, EVERY 8 HOURS; STRENGTH: 40 MG/ML
     Route: 048
     Dates: start: 20181125, end: 20181211
  13. CRESEMBA [Interacting]
     Active Substance: ISAVUCONAZONIUM SULFATE
     Indication: ASPERGILLUS INFECTION
     Dosage: UNK UNK, UNKNOWN
     Route: 048
     Dates: start: 201812
  14. CRESEMBA [Interacting]
     Active Substance: ISAVUCONAZONIUM SULFATE
     Indication: MUCORMYCOSIS
     Dosage: UNK UNK, UNKNOWN
     Route: 048
     Dates: start: 20190107
  15. PRAVACHOL [Concomitant]
     Active Substance: PRAVASTATIN SODIUM
     Dosage: 10 MILLIGRAM
  16. BACTRIM [Concomitant]
     Active Substance: SULFAMETHOXAZOLE\TRIMETHOPRIM
     Dosage: UNK
  17. CRESEMBA [Interacting]
     Active Substance: ISAVUCONAZONIUM SULFATE
     Indication: LUNG TRANSPLANT
     Dosage: 372 MG, EVERY 8 HOURS, FOR 6 DOSES
     Route: 048
  18. AMLODIPINE BESYLATE. [Concomitant]
     Active Substance: AMLODIPINE BESYLATE
     Dosage: UNK
     Dates: start: 20181204
  19. VITAMINS (UNSPECIFIED) [Concomitant]
     Active Substance: VITAMINS
  20. CRESEMBA [Interacting]
     Active Substance: ISAVUCONAZONIUM SULFATE
     Dosage: 372 MILLIGRAM, ONCE DAILY
     Route: 048
     Dates: start: 20190219
  21. TOPROL XL [Concomitant]
     Active Substance: METOPROLOL SUCCINATE
     Dosage: UNK
  22. PRILOSEC [Concomitant]
     Active Substance: OMEPRAZOLE MAGNESIUM
     Dosage: 20 MILLIGRAM

REACTIONS (15)
  - Sputum discoloured [Recovered/Resolved]
  - Viral infection [Not Recovered/Not Resolved]
  - Drug interaction [Unknown]
  - Blood pressure increased [Unknown]
  - Balance disorder [Not Recovered/Not Resolved]
  - Headache [Unknown]
  - Productive cough [Recovered/Resolved]
  - Insomnia [Recovering/Resolving]
  - Fatigue [Not Recovered/Not Resolved]
  - Vomiting [Unknown]
  - Peripheral swelling [Not Recovered/Not Resolved]
  - Pain [Not Recovered/Not Resolved]
  - Cataract [Unknown]
  - Dyspnoea [Not Recovered/Not Resolved]
  - Constipation [Unknown]

NARRATIVE: CASE EVENT DATE: 2018
